FAERS Safety Report 5257266-8 (Version None)
Quarter: 2007Q1

REPORT INFORMATION
  Report Type: 
  Country: None (occurrence: None)
  Receive Date: 20070307
  Receipt Date: 20070305
  Transmission Date: 20070707
  Serious: Yes (Hospitalization)
  Sender: FDA-Public Use
  Company Number: US-BRISTOL-MYERS SQUIBB COMPANY-13700620

PATIENT
  Age: 79 Year
  Sex: Male
  Weight: 75 kg

DRUGS (3)
  1. CETUXIMAB [Suspect]
     Route: 042
     Dates: start: 20070227, end: 20070227
  2. CARBOPLATIN [Suspect]
     Indication: PHARYNGEAL CANCER STAGE UNSPECIFIED
     Route: 042
     Dates: start: 20070220, end: 20070220
  3. TAXOL [Suspect]
     Route: 042
     Dates: start: 20070227, end: 20070227

REACTIONS (1)
  - SUICIDE ATTEMPT [None]
